FAERS Safety Report 9381997 (Version 1)
Quarter: 2013Q3

REPORT INFORMATION
  Report Type: Spontaneous
  Country: JP (occurrence: JP)
  Receive Date: 20130703
  Receipt Date: 20130703
  Transmission Date: 20140515
  Serious: Yes (Hospitalization)
  Sender: FDA-Public Use
  Company Number: JP-EISAI INC-E2090-02728-SPO-JP

PATIENT
  Age: 47 Year
  Sex: Male

DRUGS (3)
  1. TRERIEF [Suspect]
     Indication: PARKINSON^S DISEASE
     Route: 048
  2. REQUIP [Suspect]
     Indication: PARKINSON^S DISEASE
     Dosage: UNKNOWN
     Route: 048
  3. LEVODOPA/ CARBIDOPA [Suspect]
     Indication: PARKINSON^S DISEASE
     Dosage: UNKNOWN
     Route: 048

REACTIONS (1)
  - Neuroleptic malignant syndrome [Recovering/Resolving]
